FAERS Safety Report 8469755 (Version 2)
Quarter: 2015Q1

REPORT INFORMATION
  Report Type: Spontaneous
  Country: US (occurrence: None)
  Receive Date: 20120316
  Receipt Date: 20150204
  Transmission Date: 20150721
  Serious: Yes (Hospitalization)
  Sender: FDA-Public Use
  Company Number: AXC-2012-000093

PATIENT
  Age: 77 Year
  Sex: Female

DRUGS (22)
  1. MAGNESIUM (MAGNESIUM) [Concomitant]
     Active Substance: MAGNESIUM
  2. MONISTAT (MICONAZOLE NITRATE) [Concomitant]
  3. PHENERGAN [Concomitant]
     Active Substance: PROMETHAZINE HYDROCHLORIDE
  4. ZOCOR [Concomitant]
     Active Substance: SIMVASTATIN
  5. ESOMEPRAZOLE MAGNESIUM (ESOMEPRAZOLE MAGNESIUM) [Concomitant]
     Active Substance: ESOMEPRAZOLE MAGNESIUM
  6. COMPAZINE [Concomitant]
     Active Substance: PROCHLORPERAZINE MALEATE
  7. MAALOX  (ALUMINIUM HYDROXIDE, MAGNESIUM HYDROXIDE) [Concomitant]
  8. ZOMETA [Concomitant]
     Active Substance: ZOLEDRONIC ACID
  9. DEXAMETHASONE (DEXAMETHASONE) [Concomitant]
     Active Substance: DEXAMETHASONE
  10. TRIPLE-MIX MOUTH WASH [Concomitant]
  11. PERCOCET (OXYCODONE HYDROCHLORIDE, PARACETAMOL) [Concomitant]
  12. ABARELIX [Suspect]
     Active Substance: ABARELIX
     Indication: PRODUCT USED FOR UNKNOWN INDICATION
  13. MIACALCIN (CALCITONIN, SALMON) [Concomitant]
  14. GLYCERIN  (GLYCEROL) [Concomitant]
  15. SENOKOT (SENNA ALEXANDRINA) [Concomitant]
  16. ALOXI (PALONOSETRON HYDROCHLORIDE) [Concomitant]
  17. AVASTIN [Suspect]
     Active Substance: BEVACIZUMAB
     Indication: BREAST CANCER METASTATIC
     Dosage: Q 3 WEEKS, INTRAVENOUS
     Route: 042
     Dates: start: 20060829
  18. PACLITAXEL. [Suspect]
     Active Substance: PACLITAXEL
     Indication: BREAST CANCER
     Dosage: 416 MG,
     Dates: start: 20060829
  19. ASTELIN  (AZELASTINE HYDROCHLORIDE) [Concomitant]
     Active Substance: AZELASTINE HYDROCHLORIDE
  20. CARAFATE [Suspect]
     Active Substance: SUCRALFATE
     Indication: PRODUCT USED FOR UNKNOWN INDICATION
  21. DIPHENHYDRAMINE HYDROCHLORIDE (DIPHENHYDRAMINE HYDROCHLORIDE) [Concomitant]
  22. OS-CAL (CALCIUM CARBONATE) [Concomitant]

REACTIONS (9)
  - Melaena [None]
  - Vomiting [None]
  - Nausea [None]
  - Blood potassium decreased [None]
  - Coagulopathy [None]
  - Oesophagitis [None]
  - Gastritis [None]
  - Duodenal ulcer [None]
  - Haematemesis [None]

NARRATIVE: CASE EVENT DATE: 20070109
